FAERS Safety Report 6731358-6 (Version None)
Quarter: 2010Q2

REPORT INFORMATION
  Report Type: 
  Country: None (occurrence: None)
  Receive Date: 20100517
  Receipt Date: 20100517
  Transmission Date: 20101027
  Serious: No
  Sender: FDA-Public Use
  Company Number: None

PATIENT
  Age: 22 Year
  Sex: Female
  Weight: 63.05 kg

DRUGS (2)
  1. OMNARIS [Suspect]
     Indication: MULTIPLE ALLERGIES
     Dosage: 2 SPRAYS PER NOSTRIL ONCE A DAY NASAL
     Route: 045
     Dates: start: 20100505, end: 20100514
  2. OMNARIS [Suspect]
     Indication: SINUSITIS
     Dosage: 2 SPRAYS PER NOSTRIL ONCE A DAY NASAL
     Route: 045
     Dates: start: 20100505, end: 20100514

REACTIONS (3)
  - ACNE [None]
  - FUNGAL INFECTION [None]
  - WEIGHT INCREASED [None]
